FAERS Safety Report 23348285 (Version 2)
Quarter: 2024Q1

REPORT INFORMATION
  Report Type: Spontaneous
  Country: PT (occurrence: PT)
  Receive Date: 20231228
  Receipt Date: 20240130
  Transmission Date: 20240410
  Serious: Yes (Hospitalization, Other)
  Sender: FDA-Public Use
  Company Number: PT-GILEAD-2023-0656500

PATIENT
  Age: 28 Year
  Sex: Female

DRUGS (2)
  1. VIREAD [Suspect]
     Active Substance: TENOFOVIR DISOPROXIL FUMARATE
     Indication: Hepatitis B
     Dosage: UNK
     Route: 065
  2. THIAMINE [Concomitant]
     Active Substance: THIAMINE

REACTIONS (3)
  - Wernicke-Korsakoff syndrome [Unknown]
  - Hyperemesis gravidarum [Recovered/Resolved]
  - Maternal exposure during pregnancy [Recovered/Resolved]
